FAERS Safety Report 15053596 (Version 1)
Quarter: 2018Q2

REPORT INFORMATION
  Report Type: Report from Study
  Country: US (occurrence: US)
  Receive Date: 20180622
  Receipt Date: 20180622
  Transmission Date: 20180711
  Serious: No
  Sender: FDA-Public Use
  Company Number: US-AMGEN-USASL2015087859

PATIENT
  Age: 62 Year
  Sex: Male

DRUGS (1)
  1. NPLATE [Suspect]
     Active Substance: ROMIPLOSTIM
     Indication: IMMUNE THROMBOCYTOPENIC PURPURA
     Dosage: UNK UNK, QWK
     Route: 065
     Dates: start: 200912

REACTIONS (7)
  - Platelet count abnormal [Unknown]
  - Insomnia [Recovered/Resolved]
  - Platelet count decreased [Unknown]
  - Drug effect decreased [Unknown]
  - Nasopharyngitis [Unknown]
  - Blood cholesterol increased [Unknown]
  - Hypersensitivity [Unknown]
